FAERS Safety Report 4693854-5 (Version None)
Quarter: 2005Q2

REPORT INFORMATION
  Report Type: 
  Country: None (occurrence: None)
  Receive Date: 20050615
  Receipt Date: 20050606
  Transmission Date: 20051028
  Serious: Yes (Other)
  Sender: FDA-Public Use
  Company Number: S05-USA-02954-01

PATIENT
  Age: 58 Year
  Sex: Male

DRUGS (4)
  1. AEROBID [Suspect]
     Indication: CHRONIC OBSTRUCTIVE PULMONARY DISEASE
     Dosage: 2 PUFF BID IH
     Route: 055
     Dates: start: 20050101
  2. COMBIVENT (IPRATROPIUM, ALBUTEROL) [Concomitant]
  3. MORPHINE [Concomitant]
  4. PERCOCET [Concomitant]

REACTIONS (1)
  - BREATH ALCOHOL TEST POSITIVE [None]
